FAERS Safety Report 23534131 (Version 3)
Quarter: 2024Q2

REPORT INFORMATION
  Report Type: Report from Study
  Country: US (occurrence: US)
  Receive Date: 20240216
  Receipt Date: 20240513
  Transmission Date: 20240716
  Serious: Yes (Other)
  Sender: FDA-Public Use
  Company Number: US-ABBVIE-5639043

PATIENT
  Sex: Female
  Weight: 110 kg

DRUGS (19)
  1. RINVOQ [Suspect]
     Active Substance: UPADACITINIB
     Indication: Crohn^s disease
     Route: 048
     Dates: start: 20240115, end: 20240115
  2. RINVOQ [Suspect]
     Active Substance: UPADACITINIB
     Indication: Crohn^s disease
     Route: 048
     Dates: start: 20240116
  3. RINVOQ [Suspect]
     Active Substance: UPADACITINIB
     Indication: Crohn^s disease
     Dosage: 1 TABLET BY MOUTH ONCE A DAY
     Route: 048
  4. ASCORBIC ACID [Concomitant]
     Active Substance: ASCORBIC ACID
     Indication: Product used for unknown indication
     Route: 048
  5. ATORVASTATIN [Concomitant]
     Active Substance: ATORVASTATIN
     Indication: Product used for unknown indication
     Route: 048
  6. BUPROPION HYDROCHLORIDE [Concomitant]
     Active Substance: BUPROPION HYDROCHLORIDE
     Indication: Product used for unknown indication
     Route: 048
  7. CELEBREX [Concomitant]
     Active Substance: CELECOXIB
     Indication: Product used for unknown indication
     Route: 048
  8. DULOXETINE [Concomitant]
     Active Substance: DULOXETINE
     Indication: Product used for unknown indication
     Route: 048
  9. GABAPENTIN [Concomitant]
     Active Substance: GABAPENTIN
     Indication: Product used for unknown indication
     Dosage: 300 MG TAKE 1 CAPSULE BY MOUTH THREE TIMES A DAY
     Route: 048
  10. GLYCOPYRROLATE [Concomitant]
     Active Substance: GLYCOPYRROLATE
     Indication: Product used for unknown indication
     Dosage: TAKE 2 TABLETS BY MOUTH THREE TIMES A DAY
     Route: 048
  11. LAMOTRIGINE [Concomitant]
     Active Substance: LAMOTRIGINE
     Indication: Product used for unknown indication
     Dosage: 25 MG TAKE 1 TABLET BY MOUTH TWICE A DAY
     Route: 050
  12. Mag [Concomitant]
     Indication: Product used for unknown indication
     Dosage: TAKE 1 TABLET BY MOUTH TWICE A DAY
     Route: 048
  13. ASPIRIN [Concomitant]
     Active Substance: ASPIRIN
     Indication: Product used for unknown indication
     Route: 048
  14. ADVAIR HFA [Concomitant]
     Active Substance: FLUTICASONE PROPIONATE\SALMETEROL XINAFOATE
     Indication: Product used for unknown indication
     Dosage: 00-50 MCG/DOSE INHALE?ADVAIR DISKUS
     Route: 048
  15. METHOCARBAMOL [Concomitant]
     Active Substance: METHOCARBAMOL
     Indication: Product used for unknown indication
     Dosage: 750 MG TAKE 2 TABLETS BY MOUTH THREE TIMES A DAY
     Route: 048
  16. OMEGA-3 FATTY ACIDS [Concomitant]
     Active Substance: OMEGA-3 FATTY ACIDS
     Indication: Product used for unknown indication
     Dosage: 1,000 MG 1 CAPSULE BY MOUTH ONCE A DAY
     Route: 048
  17. PANTOPRAZOLE [Concomitant]
     Active Substance: PANTOPRAZOLE
     Indication: Product used for unknown indication
     Dosage: 40 MG TAKE 1 TABLET BY MOUTH ONCE A DAY
     Route: 048
  18. POTASSIUM CHLORIDE [Concomitant]
     Active Substance: POTASSIUM CHLORIDE
     Indication: Product used for unknown indication
     Dosage: 20 MEQ TAKE 3 TABLETS BY MOUTH ONCE A DAY
     Route: 048
  19. VITAMIN D3 [Concomitant]
     Active Substance: CHOLECALCIFEROL
     Indication: Product used for unknown indication
     Dosage: 25 MCG (1,000 UNIT) TAKE 2 TABLETS BY MOUTH ONCE A DAY
     Route: 048

REACTIONS (25)
  - Acne [Not Recovered/Not Resolved]
  - White blood cell count increased [Not Recovered/Not Resolved]
  - Hernia [Recovered/Resolved]
  - Gastrointestinal mucosa hyperaemia [Unknown]
  - Swelling [Not Recovered/Not Resolved]
  - Flatulence [Unknown]
  - Wound complication [Not Recovered/Not Resolved]
  - Hypertension [Unknown]
  - Asthma [Unknown]
  - Colitis [Unknown]
  - Emphysema [Unknown]
  - Hyperlipidaemia [Unknown]
  - Haemorrhoids [Unknown]
  - Ileal ulcer [Unknown]
  - Acne [Unknown]
  - Abdominal hernia [Unknown]
  - Abdominal pain [Unknown]
  - Enteritis [Unknown]
  - Chronic obstructive pulmonary disease [Unknown]
  - Anxiety [Unknown]
  - Depression [Unknown]
  - Polycystic ovarian syndrome [Unknown]
  - Small intestinal obstruction [Unknown]
  - Arthralgia [Unknown]
  - Gastrointestinal erosion [Unknown]

NARRATIVE: CASE EVENT DATE: 20240101
